FAERS Safety Report 13184391 (Version 2)
Quarter: 2017Q1

REPORT INFORMATION
  Report Type: Report from Study
  Country: GB (occurrence: GB)
  Receive Date: 20170203
  Receipt Date: 20170313
  Transmission Date: 20170428
  Serious: Yes (Other)
  Sender: FDA-Public Use
  Company Number: GB-BIOMARINAP-GB-2017-112665

PATIENT
  Age: 22 Year
  Sex: Male
  Weight: 41 kg

DRUGS (1)
  1. NAGLAZYME [Suspect]
     Active Substance: GALSULFASE
     Indication: MUCOPOLYSACCHARIDOSIS VI
     Dosage: 40 MG, QW
     Route: 042
     Dates: start: 20060517

REACTIONS (1)
  - Corneal transplant [Recovered/Resolved]

NARRATIVE: CASE EVENT DATE: 20170123
